FAERS Safety Report 19752825 (Version 4)
Quarter: 2022Q3

REPORT INFORMATION
  Report Type: Report from Study
  Country: IN (occurrence: IN)
  Receive Date: 20210826
  Receipt Date: 20220815
  Transmission Date: 20221027
  Serious: Yes (Death, Other)
  Sender: FDA-Public Use
  Company Number: IN-NOVARTISPH-NVSC2020IN308031

PATIENT
  Age: 63 Year
  Sex: Female

DRUGS (3)
  1. RIBOCICLIB [Suspect]
     Active Substance: RIBOCICLIB
     Indication: Breast cancer
     Dosage: 600 MG, QD
     Route: 048
     Dates: start: 20190923, end: 202101
  2. RIBOCICLIB [Suspect]
     Active Substance: RIBOCICLIB
     Dosage: 600 MG, QD
     Route: 065
     Dates: start: 20210810, end: 202206
  3. LETROZOLE [Suspect]
     Active Substance: LETROZOLE
     Indication: Breast cancer
     Dosage: UNK
     Route: 065
     Dates: start: 20190923, end: 202002

REACTIONS (13)
  - Death [Fatal]
  - Breast discharge [Recovered/Resolved]
  - Breast cancer [Not Recovered/Not Resolved]
  - Malignant neoplasm progression [Not Recovered/Not Resolved]
  - Metastases to central nervous system [Unknown]
  - Metastases to neck [Not Recovered/Not Resolved]
  - Breast haemorrhage [Unknown]
  - Tumour ulceration [Unknown]
  - Visual impairment [Unknown]
  - COVID-19 [Unknown]
  - Pruritus [Unknown]
  - Breast mass [Unknown]
  - Nipple disorder [Unknown]

NARRATIVE: CASE EVENT DATE: 20201017
